FAERS Safety Report 6764200-8 (Version None)
Quarter: 2010Q2

REPORT INFORMATION
  Report Type: 
  Country: None (occurrence: None)
  Receive Date: 20100610
  Receipt Date: 20100608
  Transmission Date: 20101027
  Serious: Yes (Hospitalization)
  Sender: FDA-Public Use
  Company Number: B0639073A

PATIENT
  Sex: Male

DRUGS (1)
  1. AUGMENTIN '125' [Suspect]
     Indication: COUGH
     Dosage: 1G TWICE PER DAY
     Route: 048
     Dates: start: 20100221, end: 20100221

REACTIONS (4)
  - LIP OEDEMA [None]
  - LIP SWELLING [None]
  - OEDEMA PERIPHERAL [None]
  - RASH [None]
